FAERS Safety Report 22382524 (Version 1)
Quarter: 2023Q2

REPORT INFORMATION
  Report Type: Spontaneous
  Country: US (occurrence: None)
  Receive Date: 20230526
  Receipt Date: 20230526
  Transmission Date: 20230722
  Serious: Yes (Other)
  Sender: FDA-Public Use
  Company Number: None

PATIENT
  Sex: Female

DRUGS (1)
  1. CAPECITABINE [Suspect]
     Active Substance: CAPECITABINE
     Dosage: FREQUENCY : TWICE A DAY;?
     Route: 048

REACTIONS (8)
  - Throat irritation [None]
  - Oropharyngeal pain [None]
  - Sinusitis [None]
  - Constipation [None]
  - Diarrhoea [None]
  - Hypoaesthesia [None]
  - Hypoaesthesia [None]
  - Brain fog [None]
